FAERS Safety Report 25428748 (Version 1)
Quarter: 2025Q2

REPORT INFORMATION
  Report Type: Spontaneous
  Country: US (occurrence: US)
  Receive Date: 20250612
  Receipt Date: 20250612
  Transmission Date: 20250717
  Serious: Yes (Hospitalization)
  Sender: ROCHE
  Company Number: US-ROCHE-10000309389

PATIENT
  Sex: Male

DRUGS (10)
  1. XOLAIR [Suspect]
     Active Substance: OMALIZUMAB
     Indication: Prostate cancer
     Route: 065
  2. ATORVASTATIN [Concomitant]
     Active Substance: ATORVASTATIN
  3. CITALOPRAM [Concomitant]
     Active Substance: CITALOPRAM
  4. LANTUS [Concomitant]
     Active Substance: INSULIN GLARGINE
  5. LEVOTHYROXINE [Concomitant]
     Active Substance: LEVOTHYROXINE
  6. MYRBETRIQ [Concomitant]
     Active Substance: MIRABEGRON
  7. AMOXICILLIN [Concomitant]
     Active Substance: AMOXICILLIN
  8. DOXYCYCLINE [Concomitant]
     Active Substance: DOXYCYCLINE
  9. ALPRAZOLAM [Concomitant]
     Active Substance: ALPRAZOLAM
  10. PANTOPRAZOLE [Concomitant]
     Active Substance: PANTOPRAZOLE

REACTIONS (3)
  - Urinary tract infection [Recovered/Resolved]
  - Renal disorder [Recovered/Resolved]
  - Off label use [Unknown]
